FAERS Safety Report 25767608 (Version 1)
Quarter: 2025Q3

REPORT INFORMATION
  Report Type: Spontaneous
  Country: US (occurrence: US)
  Receive Date: 20250905
  Receipt Date: 20250905
  Transmission Date: 20251020
  Serious: No
  Sender: BLUEPRINT MEDICINES
  Company Number: US-Blueprint Medicines Corporation-2025-AER-01934

PATIENT
  Age: 69 Year
  Sex: Female

DRUGS (1)
  1. AYVAKIT [Suspect]
     Active Substance: AVAPRITINIB
     Indication: Gastrointestinal stromal tumour
     Route: 065
     Dates: start: 20250720

REACTIONS (3)
  - Periorbital swelling [Unknown]
  - Swelling face [Recovered/Resolved]
  - Haemoglobin decreased [Unknown]
